FAERS Safety Report 5698962-8 (Version None)
Quarter: 2008Q2

REPORT INFORMATION
  Report Type: 
  Country: None (occurrence: None)
  Receive Date: 20080408
  Receipt Date: 20060817
  Transmission Date: 20081010
  Serious: No
  Sender: FDA-Public Use
  Company Number: US-BAYER-US-2006-023755

PATIENT
  Age: 43 Year
  Sex: Female
  Weight: 75 kg

DRUGS (2)
  1. ULTRAVIST (PHARMACY BULK) [Suspect]
     Indication: COMPUTERISED TOMOGRAM
     Dosage: UNIT DOSE: 120 ML
     Route: 042
     Dates: start: 20060817, end: 20060817
  2. ZOLOFT [Concomitant]
     Dosage: UNIT DOSE: 50 MG
     Route: 048

REACTIONS (3)
  - PULMONARY CONGESTION [None]
  - SINUS CONGESTION [None]
  - SNEEZING [None]
